FAERS Safety Report 24924835 (Version 1)
Quarter: 2025Q1

REPORT INFORMATION
  Report Type: Report from Study
  Country: US (occurrence: US)
  Receive Date: 20250204
  Receipt Date: 20250204
  Transmission Date: 20250408
  Serious: No
  Sender: EXELIXIS
  Company Number: US-EXELIXIS-CABO-24075949

PATIENT
  Sex: Male

DRUGS (20)
  1. CABOMETYX [Suspect]
     Active Substance: CABOZANTINIB S-MALATE
     Indication: Renal cancer
     Dosage: 40 MG, QD
     Route: 048
     Dates: start: 202401
  2. ACETAMINOPHEN [Concomitant]
     Active Substance: ACETAMINOPHEN
  3. ALBUTEROL SULFATE [Concomitant]
     Active Substance: ALBUTEROL SULFATE
  4. ASPIRIN [Concomitant]
     Active Substance: ASPIRIN
  5. CARVEDILOL [Concomitant]
     Active Substance: CARVEDILOL
  6. DIPHENOXYLATE [Concomitant]
     Active Substance: DIPHENOXYLATE
  7. DULOXETINE HYDROCHLORIDE [Concomitant]
     Active Substance: DULOXETINE HYDROCHLORIDE
  8. ELIQUIS [Concomitant]
     Active Substance: APIXABAN
  9. GABAPENTIN [Concomitant]
     Active Substance: GABAPENTIN
  10. HYDROCORTISONE [Concomitant]
     Active Substance: HYDROCORTISONE
  11. JARDIANCE [Concomitant]
     Active Substance: EMPAGLIFLOZIN
  12. LANTUS SOLOSTAR [Concomitant]
     Active Substance: INSULIN GLARGINE
  13. METFORMIN HYDROCHLORIDE [Concomitant]
     Active Substance: METFORMIN HYDROCHLORIDE
  14. ONDANSETRON [Concomitant]
     Active Substance: ONDANSETRON
  15. OZEMPIC [Concomitant]
     Active Substance: SEMAGLUTIDE
  16. SPIRONOLACTONE [Concomitant]
     Active Substance: SPIRONOLACTONE
  17. UREA C [Concomitant]
  18. VALSARTAN [Concomitant]
     Active Substance: VALSARTAN
  19. VITAMIN D [Concomitant]
     Active Substance: VITAMIN D NOS
  20. VOLTAREN [Concomitant]
     Active Substance: DICLOFENAC SODIUM

REACTIONS (5)
  - Sensitive skin [Not Recovered/Not Resolved]
  - Skin disorder [Not Recovered/Not Resolved]
  - Frequent bowel movements [Not Recovered/Not Resolved]
  - Skin discolouration [Not Recovered/Not Resolved]
  - Weight decreased [Not Recovered/Not Resolved]
